FAERS Safety Report 16597747 (Version 1)
Quarter: 2019Q3

REPORT INFORMATION
  Report Type: Spontaneous
  Country: FR (occurrence: FR)
  Receive Date: 20190719
  Receipt Date: 20190719
  Transmission Date: 20191004
  Serious: Yes (Life-Threatening, Hospitalization)
  Sender: FDA-Public Use
  Company Number: FR-PFIZER INC-2019304575

PATIENT
  Age: 72 Year
  Sex: Female
  Weight: 65 kg

DRUGS (5)
  1. MIRTAZAPINE. [Suspect]
     Active Substance: MIRTAZAPINE
     Dosage: 6 DF, 1X/DAY
     Route: 048
     Dates: start: 20180307, end: 20180307
  2. ZOPICLONE [Suspect]
     Active Substance: ZOPICLONE
     Dosage: 7 DF, 1X/DAY
     Route: 048
     Dates: start: 20180307, end: 20180307
  3. AMLOR [Suspect]
     Active Substance: AMLODIPINE BESYLATE
     Dosage: 20 DF, 1X/DAY
     Route: 048
     Dates: start: 20180307, end: 20180307
  4. LERCANIDIPINE HCL [Suspect]
     Active Substance: LERCANIDIPINE HYDROCHLORIDE
     Dosage: 30 DF, 1X/DAY
     Route: 048
     Dates: start: 20180307, end: 20180307
  5. SOTALOL HCL [Suspect]
     Active Substance: SOTALOL
     Dosage: 16 DF, 1X/DAY
     Route: 048
     Dates: start: 20180307, end: 20180307

REACTIONS (8)
  - Suicide attempt [Unknown]
  - Hypokalaemia [Recovered/Resolved]
  - Toxicity to various agents [Recovered/Resolved]
  - Hypotension [Recovered/Resolved]
  - Intentional overdose [Unknown]
  - Somnolence [Recovered/Resolved]
  - Electrocardiogram QT prolonged [Recovered/Resolved]
  - Atrioventricular block [Recovered/Resolved]

NARRATIVE: CASE EVENT DATE: 20180307
